FAERS Safety Report 4539480-X (Version None)
Quarter: 2004Q4

REPORT INFORMATION
  Report Type: 
  Country: None (occurrence: None)
  Receive Date: 20041228
  Receipt Date: 20041119
  Transmission Date: 20050328
  Serious: Yes (Hospitalization)
  Sender: FDA-Public Use
  Company Number: 200414366FR

PATIENT
  Age: 38 Year
  Sex: Male

DRUGS (8)
  1. LOVENOX [Suspect]
     Route: 058
     Dates: start: 20041020, end: 20041029
  2. TOPALGIC [Suspect]
     Route: 042
     Dates: start: 20041020, end: 20041021
  3. SKENAN [Suspect]
     Route: 048
     Dates: start: 20041020, end: 20041026
  4. KALEORID [Concomitant]
     Route: 048
     Dates: start: 20041027, end: 20041029
  5. ZYRTEC [Concomitant]
     Route: 048
     Dates: start: 20041026, end: 20041027
  6. TRAMADOL HCL [Concomitant]
     Route: 048
     Dates: start: 20041026, end: 20041027
  7. MOPRAL [Concomitant]
     Route: 048
     Dates: start: 20041025, end: 20041029
  8. PROFENID [Concomitant]
     Route: 042
     Dates: start: 20041025, end: 20041029

REACTIONS (4)
  - C-REACTIVE PROTEIN INCREASED [None]
  - CHOLESTASIS [None]
  - HYPOKALAEMIA [None]
  - PRURITUS [None]
